FAERS Safety Report 4748861-0 (Version None)
Quarter: 2005Q3

REPORT INFORMATION
  Report Type: 
  Country: None (occurrence: None)
  Receive Date: 20050817
  Receipt Date: 20050804
  Transmission Date: 20060218
  Serious: Yes (Disabling, Other)
  Sender: FDA-Public Use
  Company Number: 2005089733

PATIENT
  Sex: Male
  Weight: 92.9874 kg

DRUGS (5)
  1. LIPITOR [Suspect]
     Indication: BLOOD CHOLESTEROL INCREASED
     Dosage: 30 MG (20 MG, 1 IN 1 D), ORAL
     Route: 048
  2. METOPROLOL TARTRATE [Suspect]
     Indication: VENTRICULAR EXTRASYSTOLES
     Dosage: 50 MG (50 MG, 1 IN 1 D)
  3. ENALAPRIL MALEATE [Concomitant]
  4. MULTIVITAMIN [Concomitant]
  5. CRESTOR [Suspect]
     Indication: BLOOD CHOLESTEROL INCREASED
     Dosage: 10 MG (10 MG, 1 IN 1 D), ORAL
     Route: 048
     Dates: start: 20040101, end: 20041001

REACTIONS (32)
  - ANXIETY [None]
  - CATARACT [None]
  - COGNITIVE DISORDER [None]
  - CONFUSIONAL STATE [None]
  - EYE DISORDER [None]
  - FATIGUE [None]
  - FLATULENCE [None]
  - GLAUCOMA [None]
  - GLUCOSE TOLERANCE IMPAIRED [None]
  - GLUCOSE URINE PRESENT [None]
  - HIGH DENSITY LIPOPROTEIN ABNORMAL [None]
  - HYPERCALCAEMIA [None]
  - HYPERCHOLESTEROLAEMIA [None]
  - HYPERGLYCAEMIA [None]
  - HYPERTENSION [None]
  - HYPOAESTHESIA [None]
  - LOW DENSITY LIPOPROTEIN ABNORMAL [None]
  - LOW DENSITY LIPOPROTEIN INCREASED [None]
  - MEMORY IMPAIRMENT [None]
  - MENTAL STATUS CHANGES [None]
  - MUSCLE SPASMS [None]
  - MYALGIA [None]
  - NEUROPATHY PERIPHERAL [None]
  - OBSESSIVE-COMPULSIVE DISORDER [None]
  - PARAESTHESIA [None]
  - PROSTATITIS [None]
  - PYURIA [None]
  - SKIN LACERATION [None]
  - TARSAL TUNNEL SYNDROME [None]
  - URINE ABNORMALITY [None]
  - VENTRICULAR EXTRASYSTOLES [None]
  - WEIGHT INCREASED [None]
